FAERS Safety Report 5157905-6 (Version None)
Quarter: 2006Q4

REPORT INFORMATION
  Report Type: 
  Country: None (occurrence: None)
  Receive Date: 20061122
  Receipt Date: 20061122
  Transmission Date: 20070319
  Serious: Yes (Life-Threatening, Hospitalization, Other)
  Sender: FDA-Public Use
  Company Number: None

PATIENT
  Age: 32 Year
  Sex: Female
  Weight: 79.3795 kg

DRUGS (1)
  1. ORTHO EVRA [Suspect]
     Indication: CONTRACEPTION
     Dosage: 1 PATCH/WEEK TRANSDERMAL
     Route: 062
     Dates: start: 20031201, end: 20040728

REACTIONS (2)
  - DEEP VEIN THROMBOSIS [None]
  - OVARIAN CYST [None]
